FAERS Safety Report 9373749 (Version 1)
Quarter: 2013Q2

REPORT INFORMATION
  Report Type: Spontaneous
  Country: DE (occurrence: DE)
  Receive Date: 20130628
  Receipt Date: 20130628
  Transmission Date: 20140414
  Serious: Yes (Congenital Anomaly, Other)
  Sender: FDA-Public Use
  Company Number: DE-PFIZER INC-2013189403

PATIENT
  Sex: Male
  Weight: 3.42 kg

DRUGS (4)
  1. TREVILOR RETARD [Suspect]
     Indication: DEPRESSION
     Dosage: 75 MG, 1X/DAY
     Route: 064
     Dates: start: 20091206
  2. TREVILOR RETARD [Suspect]
     Dosage: 37.5 MG, DAILY
     Route: 064
  3. DOPPELHERZ AKTIV FOLSAEURE 800 [Concomitant]
     Indication: PROPHYLAXIS OF NEURAL TUBE DEFECT
     Dosage: 0.8 MG, DAILY; GESTATIONAL WEEK 5.5 - 12
     Route: 064
     Dates: start: 20100115, end: 20100228
  4. IBUPROFEN LYSINATE [Concomitant]
     Indication: MIGRAINE
     Dosage: 1000 MG, DAILY/ UNTIL 25TH WEEK 6
     Route: 064

REACTIONS (7)
  - Maternal exposure during pregnancy [Not Recovered/Not Resolved]
  - Eyelid ptosis congenital [Not Recovered/Not Resolved]
  - Heterophoria [Unknown]
  - Hypermetropia [Unknown]
  - Rectal prolapse [Recovered/Resolved with Sequelae]
  - Anal prolapse [Recovered/Resolved with Sequelae]
  - Anal polyp [Recovered/Resolved with Sequelae]
